FAERS Safety Report 12848296 (Version 1)
Quarter: 2016Q4

REPORT INFORMATION
  Report Type: Spontaneous
  Country: US (occurrence: US)
  Receive Date: 20161014
  Receipt Date: 20161014
  Transmission Date: 20170207
  Serious: No
  Sender: FDA-Public Use
  Company Number: US-JNJFOC-20160800863

PATIENT
  Age: 62 Year
  Sex: Male

DRUGS (17)
  1. TYLENOL [Suspect]
     Active Substance: ACETAMINOPHEN
     Indication: PREMEDICATION
     Route: 065
     Dates: start: 20160324
  2. REMICADE [Concomitant]
     Active Substance: INFLIXIMAB
     Indication: REITER^S SYNDROME
     Route: 065
     Dates: start: 20160324
  3. REMICADE [Concomitant]
     Active Substance: INFLIXIMAB
     Indication: REITER^S SYNDROME
     Dosage: 100 MG SOLUTION RECONSTITUTED 400 MG
     Route: 065
     Dates: start: 20160121
  4. REMICADE [Concomitant]
     Active Substance: INFLIXIMAB
     Indication: ARTHRITIS REACTIVE
     Dosage: 100 MG SOLUTION RECONSTITUTED 400 MG
     Route: 065
     Dates: start: 20160121
  5. TYLENOL [Suspect]
     Active Substance: ACETAMINOPHEN
     Indication: PREMEDICATION
     Route: 065
     Dates: start: 20160121
  6. CRESTOR [Concomitant]
     Active Substance: ROSUVASTATIN CALCIUM
     Indication: PRODUCT USED FOR UNKNOWN INDICATION
     Route: 065
  7. CLARITIN [Concomitant]
     Active Substance: LORATADINE
     Indication: PREMEDICATION
     Route: 065
     Dates: start: 20160602
  8. AMLODIPINE BESYLATE. [Concomitant]
     Active Substance: AMLODIPINE BESYLATE
     Indication: PRODUCT USED FOR UNKNOWN INDICATION
     Route: 065
  9. CLARITIN [Concomitant]
     Active Substance: LORATADINE
     Indication: PREMEDICATION
     Route: 065
     Dates: start: 20160121
  10. REMICADE [Concomitant]
     Active Substance: INFLIXIMAB
     Indication: ARTHRITIS REACTIVE
     Route: 065
     Dates: start: 20160324
  11. REMICADE [Concomitant]
     Active Substance: INFLIXIMAB
     Indication: REITER^S SYNDROME
     Route: 065
     Dates: start: 20160602
  12. CLARITIN [Concomitant]
     Active Substance: LORATADINE
     Indication: PREMEDICATION
     Route: 065
     Dates: start: 20160324
  13. PRAVASTATIN SODIUM. [Concomitant]
     Active Substance: PRAVASTATIN SODIUM
     Indication: PRODUCT USED FOR UNKNOWN INDICATION
     Route: 065
  14. TURMERIC [Concomitant]
     Active Substance: TURMERIC
     Indication: PRODUCT USED FOR UNKNOWN INDICATION
     Route: 065
  15. TYLENOL [Suspect]
     Active Substance: ACETAMINOPHEN
     Indication: PREMEDICATION
     Route: 065
     Dates: start: 20160602
  16. REMICADE [Concomitant]
     Active Substance: INFLIXIMAB
     Indication: ARTHRITIS REACTIVE
     Route: 065
     Dates: start: 20160602
  17. RANITIDINE HYDROCHLORIDE. [Concomitant]
     Active Substance: RANITIDINE HYDROCHLORIDE
     Indication: PRODUCT USED FOR UNKNOWN INDICATION
     Route: 065

REACTIONS (2)
  - Off label use [Unknown]
  - Product use issue [Unknown]

NARRATIVE: CASE EVENT DATE: 20160121
